FAERS Safety Report 25485032 (Version 1)
Quarter: 2025Q2

REPORT INFORMATION
  Report Type: Report from Study
  Country: FR (occurrence: FR)
  Receive Date: 20250626
  Receipt Date: 20250626
  Transmission Date: 20250716
  Serious: Yes (Other)
  Sender: RANBAXY
  Company Number: FR-SUN PHARMACEUTICAL INDUSTRIES LTD-2025RR-513633

PATIENT
  Age: 46 Year
  Sex: Female

DRUGS (6)
  1. FLUOXETINE [Suspect]
     Active Substance: FLUOXETINE HYDROCHLORIDE
     Indication: Aphasia
     Dosage: 20 MILLIGRAM, DAILY
     Route: 065
  2. FLUOXETINE [Suspect]
     Active Substance: FLUOXETINE HYDROCHLORIDE
     Indication: Depression
  3. FLUOXETINE [Suspect]
     Active Substance: FLUOXETINE HYDROCHLORIDE
     Indication: Insomnia
  4. MELATONIN [Suspect]
     Active Substance: MELATONIN
     Indication: Aphasia
     Dosage: 2 MILLIGRAM, DAILY
     Route: 065
  5. MELATONIN [Suspect]
     Active Substance: MELATONIN
     Indication: Depression
  6. MELATONIN [Suspect]
     Active Substance: MELATONIN
     Indication: Insomnia

REACTIONS (1)
  - Disease recurrence [Recovering/Resolving]
